FAERS Safety Report 4753692-1 (Version None)
Quarter: 2005Q3

REPORT INFORMATION
  Report Type: 
  Country: None (occurrence: None)
  Receive Date: 20050826
  Receipt Date: 20050816
  Transmission Date: 20060218
  Serious: Yes (Death)
  Sender: FDA-Public Use
  Company Number: BR-ABBOTT-05P-020-0308546-00

PATIENT
  Age: 76 Year
  Sex: Female

DRUGS (3)
  1. HUMIRA [Suspect]
     Indication: RHEUMATOID ARTHRITIS
     Dosage: ONE INJECTION EACH FOURTEEN DAYS
     Route: 058
     Dates: start: 20041201, end: 20050601
  2. PREDNISONE TAB [Concomitant]
     Indication: RHEUMATOID ARTHRITIS
     Dates: start: 20050601
  3. ANTI-INFLAMMATORY [Concomitant]
     Indication: RHEUMATOID ARTHRITIS
     Dates: start: 20050601

REACTIONS (1)
  - CEREBROVASCULAR ACCIDENT [None]
